FAERS Safety Report 11022033 (Version 1)
Quarter: 2015Q2

REPORT INFORMATION
  Report Type: Spontaneous
  Country: JP (occurrence: JP)
  Receive Date: 20150413
  Receipt Date: 20150413
  Transmission Date: 20150821
  Serious: Yes (Other)
  Sender: FDA-Public Use
  Company Number: JP-CELGENE-JPN-2015033751

PATIENT
  Age: 11 Year
  Sex: Male

DRUGS (1)
  1. VIDAZA [Suspect]
     Active Substance: AZACITIDINE
     Indication: ACUTE MYELOID LEUKAEMIA
     Dosage: 110 MILLIGRAM/SQ. METER
     Route: 065

REACTIONS (2)
  - Pancreatitis acute [Recovering/Resolving]
  - Haematotoxicity [Unknown]

NARRATIVE: CASE EVENT DATE: 20140405
